FAERS Safety Report 5575060-5 (Version None)
Quarter: 2007Q4

REPORT INFORMATION
  Report Type: 
  Country: None (occurrence: None)
  Receive Date: 20071221
  Receipt Date: 20071221
  Transmission Date: 20080405
  Serious: Yes (Other)
  Sender: FDA-Public Use
  Company Number: None

PATIENT
  Age: 65 Year
  Sex: Female
  Weight: 77.1115 kg

DRUGS (1)
  1. AVELOX [Suspect]
     Indication: HYPERSENSITIVITY
     Dosage: 400MG  1 A DAY  PO  (1 DOSE)
     Route: 048
     Dates: start: 20071219, end: 20071219

REACTIONS (1)
  - DRUG HYPERSENSITIVITY [None]
